FAERS Safety Report 5073853-4 (Version None)
Quarter: 2006Q3

REPORT INFORMATION
  Report Type: 
  Country: None (occurrence: None)
  Receive Date: 20060803
  Receipt Date: 20060724
  Transmission Date: 20061208
  Serious: Yes (Death)
  Sender: FDA-Public Use
  Company Number: 111642ISR

PATIENT
  Age: 45 Year
  Sex: Female

DRUGS (5)
  1. CITALOPRAM [Suspect]
     Indication: DEPRESSION
     Dates: start: 20031001
  2. ABILIFY [Suspect]
     Indication: PSYCHOTIC DISORDER
     Dates: start: 20050201
  3. PROCYCLIDINE HYDROCHLORIDE 5MG TAB [Suspect]
     Dates: start: 20031001
  4. KEPPRA [Suspect]
     Indication: EPILEPSY
     Dates: start: 20030501
  5. CARBMAZEPINE [Suspect]
     Indication: EPILEPSY
     Dates: start: 19920101

REACTIONS (1)
  - WEIGHT INCREASED [None]
